FAERS Safety Report 12751371 (Version 4)
Quarter: 2017Q1

REPORT INFORMATION
  Report Type: Spontaneous
  Country: US (occurrence: US)
  Receive Date: 20160915
  Receipt Date: 20170123
  Transmission Date: 20170428
  Serious: Yes (Other)
  Sender: FDA-Public Use
  Company Number: US-GLAXOSMITHKLINE-US2016134770

PATIENT
  Age: 86 Year
  Sex: Male
  Weight: 94.79 kg

DRUGS (10)
  1. CHONDROITIN [Concomitant]
     Active Substance: CHONDROITIN
  2. GLUCOSAMINE [Concomitant]
     Active Substance: GLUCOSAMINE
  3. SYMBICORT [Concomitant]
     Active Substance: BUDESONIDE\FORMOTEROL FUMARATE DIHYDRATE
  4. INCRUSE ELLIPTA [Suspect]
     Active Substance: UMECLIDINIUM BROMIDE
     Indication: DYSPNOEA
     Dosage: 1 PUFF(S), 1D
     Route: 055
     Dates: start: 20160908, end: 20160909
  5. SPIRONOLACTONE. [Concomitant]
     Active Substance: SPIRONOLACTONE
  6. LOSARTIN [Concomitant]
     Active Substance: LOSARTAN
  7. LOVASTATIN. [Concomitant]
     Active Substance: LOVASTATIN
  8. FUROSEMIDE. [Concomitant]
     Active Substance: FUROSEMIDE
  9. ASPIRIN. [Concomitant]
     Active Substance: ASPIRIN
  10. TAMSULOSIN [Concomitant]
     Active Substance: TAMSULOSIN

REACTIONS (3)
  - Urinary retention [Recovered/Resolved]
  - Labelled drug-disease interaction medication error [Unknown]
  - Micturition disorder [Recovered/Resolved]

NARRATIVE: CASE EVENT DATE: 20160910
